FAERS Safety Report 8089067-X (Version None)
Quarter: 2012Q1

REPORT INFORMATION
  Report Type: 
  Country: None (occurrence: None)
  Receive Date: 20120128
  Receipt Date: 20110817
  Transmission Date: 20120608
  Serious: No
  Sender: FDA-Public Use
  Company Number: US-ABBOTT-11P-163-0714927-00

PATIENT
  Sex: Male

DRUGS (4)
  1. HUMIRA [Suspect]
     Dosage: DAY 15
     Route: 058
  2. HUMIRA [Suspect]
     Indication: CROHN'S DISEASE
     Dosage: DAY 1
     Route: 058
     Dates: start: 20110215, end: 20110215
  3. IMURAN [Concomitant]
     Indication: CROHN'S DISEASE
     Dosage: 100 MG BY MOUTH DAILY
     Route: 048
  4. HUMIRA [Suspect]
     Route: 058

REACTIONS (5)
  - WRONG TECHNIQUE IN DRUG USAGE PROCESS [None]
  - INJECTION SITE HAEMORRHAGE [None]
  - INJECTION SITE NODULE [None]
  - INJECTION SITE PAIN [None]
  - DRUG DOSE OMISSION [None]
